FAERS Safety Report 9287727 (Version 2)
Quarter: 2013Q2

REPORT INFORMATION
  Report Type: Spontaneous
  Country: FI (occurrence: AE)
  Receive Date: 20130514
  Receipt Date: 20130517
  Transmission Date: 20140414
  Serious: Yes (Disabling)
  Sender: FDA-Public Use
  Company Number: FI-009507513-1305FIN004458

PATIENT
  Age: 53 Year
  Sex: Male

DRUGS (2)
  1. XELEVIA [Suspect]
     Indication: TYPE 2 DIABETES MELLITUS
     Dosage: 100 MG, QD
     Route: 048
     Dates: start: 20121204, end: 20130402
  2. OLMETEC PLUS [Concomitant]
     Indication: BLOOD PRESSURE
     Dosage: 20/12.5 MG, QD
     Route: 048
     Dates: start: 2007

REACTIONS (7)
  - Swelling [Unknown]
  - Erythema [Unknown]
  - Tension [Unknown]
  - Hyperaesthesia [Unknown]
  - Skin exfoliation [Unknown]
  - Thermal burn [Unknown]
  - Pain [Unknown]
